FAERS Safety Report 19519851 (Version 2)
Quarter: 2021Q3

REPORT INFORMATION
  Report Type: Spontaneous
  Country: IT (occurrence: IT)
  Receive Date: 20210712
  Receipt Date: 20210929
  Transmission Date: 20211014
  Serious: Yes (Other)
  Sender: FDA-Public Use
  Company Number: IT-MYLANLABS-2021M1040865

PATIENT
  Age: 71 Year
  Weight: 90 kg

DRUGS (2)
  1. TADALAFIL. [Suspect]
     Active Substance: TADALAFIL
     Indication: PRODUCT USED FOR UNKNOWN INDICATION
     Dosage: 20 MILLIGRAM, QW
     Route: 048
  2. STILNOX [Concomitant]
     Active Substance: ZOLPIDEM TARTRATE
     Dosage: UNK

REACTIONS (2)
  - Blood pressure increased [Not Recovered/Not Resolved]
  - Intracranial pressure increased [Not Recovered/Not Resolved]

NARRATIVE: CASE EVENT DATE: 20210406
